FAERS Safety Report 23763818 (Version 2)
Quarter: 2024Q2

REPORT INFORMATION
  Report Type: Report from Study
  Country: CA (occurrence: CA)
  Receive Date: 20240419
  Receipt Date: 20240425
  Transmission Date: 20240715
  Serious: Yes (Hospitalization)
  Sender: FDA-Public Use
  Company Number: CA-HLS-202401037

PATIENT
  Sex: Male

DRUGS (3)
  1. CLOZARIL [Suspect]
     Active Substance: CLOZAPINE
     Indication: Product used for unknown indication
     Route: 048
     Dates: start: 20221027
  2. CLOZARIL [Suspect]
     Active Substance: CLOZAPINE
     Indication: Product used for unknown indication
     Dosage: RESTARTED ON CLOZAPINE FEB. 11 TO FEB. 22
     Route: 048
     Dates: start: 20240211, end: 20240222
  3. CLOZARIL [Suspect]
     Active Substance: CLOZAPINE
     Indication: Product used for unknown indication
     Dosage: RESTARTED ON MARCH 3 TO APRIL 17TH
     Route: 048
     Dates: start: 20240303, end: 20240417

REACTIONS (2)
  - Treatment noncompliance [Unknown]
  - Therapy interrupted [Unknown]
